FAERS Safety Report 6972283-5 (Version None)
Quarter: 2010Q3

REPORT INFORMATION
  Report Type: 
  Country: None (occurrence: None)
  Receive Date: 20100909
  Receipt Date: 20100826
  Transmission Date: 20110219
  Serious: Yes (Death)
  Sender: FDA-Public Use
  Company Number: ES-ELI_LILLY_AND_COMPANY-ES201008007780

PATIENT
  Sex: Female
  Weight: 34 kg

DRUGS (12)
  1. FORTEO [Suspect]
     Indication: OSTEOPOROSIS
     Dosage: 20 UG, DAILY (1/D)
     Route: 058
     Dates: start: 20100209, end: 20100815
  2. TEGRETOL [Concomitant]
     Dosage: UNK, 2/D
     Route: 048
  3. RISPERDAL [Concomitant]
     Indication: SCHIZOPHRENIA
     Dosage: 3 MG, DAILY (1/D)
     Route: 048
  4. ZYPREXA [Concomitant]
     Indication: MENTAL DISORDER
     Dosage: 5 MG, DAILY (1/D)
     Route: 048
  5. TRANXILIUM [Concomitant]
     Dosage: UNK, 3/D
     Route: 048
  6. DEPRAX [Concomitant]
     Indication: MENTAL DISORDER
     Dosage: 1/2 TABLETS PER NIGHT
     Route: 048
  7. DOPUPAL [Concomitant]
     Indication: DEPRESSION
     Dosage: 150 MG, EACH MORNING
     Route: 048
  8. EUTIROX [Concomitant]
     Indication: HYPOTHYROIDISM
     Dosage: UNK, 2/D
     Route: 048
  9. ISOVORIN [Concomitant]
     Dosage: UNK, DAILY (1/D)
     Route: 048
  10. ZARATOR [Concomitant]
     Indication: DYSLIPIDAEMIA
     Dosage: UNK, DAILY (1/D)
     Route: 048
  11. SERVIFLOX [Concomitant]
     Indication: ANAEMIA
     Dosage: UNK, DAILY (1/D)
     Route: 048
  12. IDEOS [Concomitant]
     Indication: OSTEOPOROSIS
     Dosage: UNK, DAILY (1/D)
     Route: 048

REACTIONS (1)
  - DEATH [None]
